FAERS Safety Report 4470796-1 (Version None)
Quarter: 2004Q4

REPORT INFORMATION
  Report Type: 
  Country: None (occurrence: None)
  Receive Date: 20041006
  Receipt Date: 20040929
  Transmission Date: 20050328
  Serious: No
  Sender: FDA-Public Use
  Company Number: 2004-120721-NL

PATIENT
  Age: 42 Year
  Sex: Female

DRUGS (9)
  1. VECURONIUM BROMIDE [Suspect]
     Indication: ANAESTHESIA
     Dosage: INTRAVENOUS (NOS)
     Route: 042
  2. GRANISETRON [Concomitant]
  3. DROPERIDOL [Concomitant]
  4. PAPAVERSTUM [Concomitant]
  5. TENOXICAM [Concomitant]
  6. OXYGEN [Concomitant]
  7. NITROUS OXIDE [Concomitant]
  8. ISOFLURANE [Concomitant]
  9. PROPOFOL [Concomitant]

REACTIONS (4)
  - DRUG EFFECT PROLONGED [None]
  - ENDOTRACHEAL INTUBATION COMPLICATION [None]
  - NEUROMUSCULAR BLOCKADE [None]
  - TRISMUS [None]
